FAERS Safety Report 21028051 (Version 1)
Quarter: 2022Q3

REPORT INFORMATION
  Report Type: Spontaneous
  Country: RU (occurrence: RU)
  Receive Date: 20220630
  Receipt Date: 20220630
  Transmission Date: 20221027
  Serious: Yes (Hospitalization)
  Sender: FDA-Public Use
  Company Number: RU-NOVARTISPH-NVSC2022RU146793

PATIENT
  Age: 28 Year
  Sex: Female
  Weight: 76 kg

DRUGS (4)
  1. AMOXICILLIN\CLAVULANATE POTASSIUM [Suspect]
     Active Substance: AMOXICILLIN\CLAVULANATE POTASSIUM
     Indication: Product used for unknown indication
     Dosage: (AMOUNT UNKNOWN), ONCE/SINGLE
     Route: 048
     Dates: start: 20220617, end: 20220617
  2. RIMANTADINE HYDROCHLORIDE [Suspect]
     Active Substance: RIMANTADINE HYDROCHLORIDE
     Indication: Product used for unknown indication
     Dosage: AMOUNT UNKNOWN, ONCE/SINGLE
     Route: 048
     Dates: start: 20220617, end: 20220617
  3. UMIFENOVIR [Suspect]
     Active Substance: UMIFENOVIR
     Indication: Product used for unknown indication
     Dosage: AMOUNT UNKNOWN, ONCE/SINGLE
     Route: 048
     Dates: start: 20220617, end: 20220617
  4. NITROGLYCERIN [Suspect]
     Active Substance: NITROGLYCERIN
     Indication: Product used for unknown indication
     Dosage: AMOUNT UNKNOWN, ONCE/SINGLE
     Route: 048
     Dates: start: 20220617, end: 20220617

REACTIONS (1)
  - Suicide attempt [Recovered/Resolved]

NARRATIVE: CASE EVENT DATE: 20220617
